FAERS Safety Report 5271102-5 (Version None)
Quarter: 2007Q1

REPORT INFORMATION
  Report Type: 
  Country: None (occurrence: None)
  Receive Date: 20070321
  Receipt Date: 20070312
  Transmission Date: 20070707
  Serious: Yes (Other)
  Sender: FDA-Public Use
  Company Number: 2007UW02859

PATIENT
  Age: 68 Year
  Sex: Male

DRUGS (5)
  1. XYLOCAINE TOPICAL FILM [Suspect]
     Indication: CATHETER PLACEMENT
     Route: 061
  2. XYLOCAINE TOPICAL FILM [Suspect]
     Route: 061
  3. GLUCONORM [Concomitant]
     Indication: DIABETES MELLITUS
  4. SECONAL [Concomitant]
     Indication: ANXIETY
  5. CAFERGOT [Concomitant]
     Indication: MIGRAINE

REACTIONS (6)
  - FALL [None]
  - INFLAMMATION [None]
  - LACERATION [None]
  - SWELLING [None]
  - URETHRAL HAEMORRHAGE [None]
  - URINARY TRACT INFECTION [None]
